FAERS Safety Report 7156305-7 (Version None)
Quarter: 2010Q4

REPORT INFORMATION
  Report Type: 
  Country: None (occurrence: None)
  Receive Date: 20101130
  Receipt Date: 20101117
  Transmission Date: 20110411
  Serious: Yes (Hospitalization)
  Sender: FDA-Public Use
  Company Number: APP201001013

PATIENT
  Age: 48 Year
  Sex: Male

DRUGS (14)
  1. FLUOROURACIL [Suspect]
     Indication: GASTRIC CANCER
     Dosage: 14 D, INTRAVENOUS
     Route: 042
  2. FLUOROURACIL [Suspect]
     Indication: OESOPHAGEAL CARCINOMA
     Dosage: 14 D, INTRAVENOUS
     Route: 042
  3. LEUCOVORIN CALCIUM [Suspect]
     Indication: GASTRIC CANCER
     Dosage: 900 MG, 14 D, INTRAVENOUS
     Route: 042
     Dates: start: 20090814, end: 20091207
  4. LEUCOVORIN CALCIUM [Suspect]
     Indication: OESOPHAGEAL CARCINOMA
     Dosage: 900 MG, 14 D, INTRAVENOUS
     Route: 042
     Dates: start: 20090814, end: 20091207
  5. BEVACIZUMAB [Suspect]
     Indication: GASTRIC CANCER
     Dosage: 1007 MG, 14 D, INTRAVENOUS
     Route: 042
     Dates: start: 20090814, end: 20091207
  6. BEVACIZUMAB [Suspect]
     Indication: OESOPHAGEAL CARCINOMA
     Dosage: 1007 MG, 14 D, INTRAVENOUS
     Route: 042
     Dates: start: 20090814, end: 20091207
  7. ELOXATIN [Suspect]
     Indication: GASTRIC CANCER
     Dosage: 191 MG, 4 D, INTRAVENOUS
     Route: 042
     Dates: start: 20090814, end: 20091207
  8. ELOXATIN [Suspect]
     Indication: OESOPHAGEAL CARCINOMA
     Dosage: 191 MG, 4 D, INTRAVENOUS
     Route: 042
     Dates: start: 20090814, end: 20091207
  9. NEXIUM [Concomitant]
  10. NAPROSYN [Concomitant]
  11. EMLA CREAM (PRILOCAINE, LIDOCAINE) [Concomitant]
  12. LORAZEPAM [Concomitant]
  13. AMBIEN [Concomitant]
  14. KYTRIL [Concomitant]

REACTIONS (21)
  - BLOOD CHLORIDE INCREASED [None]
  - BODY TEMPERATURE DECREASED [None]
  - CONSTIPATION [None]
  - DEHYDRATION [None]
  - ELECTROCARDIOGRAM T WAVE PEAKED [None]
  - GASTROINTESTINAL PAIN [None]
  - HAEMATOCRIT DECREASED [None]
  - HYPERKALAEMIA [None]
  - HYPERTENSION [None]
  - HYPOPHAGIA [None]
  - INAPPROPRIATE ANTIDIURETIC HORMONE SECRETION [None]
  - INSOMNIA [None]
  - MALIGNANT NEOPLASM PROGRESSION [None]
  - METASTASES TO LIVER [None]
  - METASTASES TO PANCREAS [None]
  - METASTASES TO RETROPERITONEUM [None]
  - NAUSEA [None]
  - PANCREATITIS [None]
  - RETINAL ARTERY STENOSIS [None]
  - SEDATION [None]
  - WHITE BLOOD CELL COUNT INCREASED [None]
